FAERS Safety Report 5885508-4 (Version None)
Quarter: 2008Q3

REPORT INFORMATION
  Report Type: 
  Country: None (occurrence: None)
  Receive Date: 20080916
  Receipt Date: 20080904
  Transmission Date: 20090109
  Serious: Yes (Death, Hospitalization)
  Sender: FDA-Public Use
  Company Number: JP-AMGEN-US295427

PATIENT
  Sex: Male
  Weight: 48 kg

DRUGS (9)
  1. ENBREL [Suspect]
     Indication: RHEUMATOID ARTHRITIS
     Route: 058
     Dates: start: 20050613, end: 20060727
  2. CYANOCOBALAMIN [Concomitant]
     Dosage: UNSPECIFIED
     Route: 048
  3. AMOBAN [Concomitant]
     Dosage: UNSPECIFIED
     Route: 048
  4. BETAMETHASONE [Concomitant]
     Indication: RHEUMATOID ARTHRITIS
     Dosage: UNSPECIFIED
     Route: 048
  5. PROTECADIN [Concomitant]
     Dosage: UNSPECIFIED
     Route: 048
  6. AMARYL [Concomitant]
     Dosage: UNSPECIFIED
     Route: 048
  7. MUCOSOLVAN [Concomitant]
     Dosage: UNSPECIFIED
     Route: 048
  8. BUCILLAMINE [Concomitant]
     Indication: RHEUMATOID ARTHRITIS
     Route: 048
  9. ASPIRIN [Concomitant]
     Dosage: UNSPECIFIED
     Route: 048

REACTIONS (4)
  - CANDIDA PNEUMONIA [None]
  - CONDITION AGGRAVATED [None]
  - PNEUMONIA STAPHYLOCOCCAL [None]
  - RHEUMATOID ARTHRITIS [None]
